FAERS Safety Report 19799079 (Version 1)
Quarter: 2021Q3

REPORT INFORMATION
  Report Type: Spontaneous
  Country: IT (occurrence: IT)
  Receive Date: 20210907
  Receipt Date: 20210907
  Transmission Date: 20211014
  Serious: Yes (Death)
  Sender: FDA-Public Use
  Company Number: IT-TEVA-2021-IT-1948990

PATIENT
  Age: 47 Year
  Sex: Male
  Weight: 192 kg

DRUGS (4)
  1. METFORMIN [Suspect]
     Active Substance: METFORMIN HYDROCHLORIDE
     Indication: DIABETES MELLITUS
     Dates: start: 20210720, end: 20210818
  2. DEPAKIN [Suspect]
     Active Substance: VALPROATE SODIUM
     Dosage: 2DOSAGEFORM
     Route: 048
  3. COMIRNATY [Suspect]
     Active Substance: TOZINAMERAN
     Indication: COVID-19 IMMUNISATION
     Dosage: 1DOSAGEFORM
     Route: 030
     Dates: start: 20210803, end: 20210803
  4. CLOZAPINE. [Suspect]
     Active Substance: CLOZAPINE
     Indication: DEPRESSION
     Dosage: 2DOSAGEFORM
     Route: 048
     Dates: start: 20210730, end: 20210818

REACTIONS (3)
  - Sopor [Fatal]
  - Hyporeflexia [Fatal]
  - Decreased activity [Fatal]
